FAERS Safety Report 5406982-3 (Version None)
Quarter: 2007Q3

REPORT INFORMATION
  Report Type: 
  Country: None (occurrence: None)
  Receive Date: 20070803
  Receipt Date: 20070803
  Transmission Date: 20080115
  Serious: Yes (Hospitalization)
  Sender: FDA-Public Use
  Company Number: None

PATIENT
  Age: 56 Year
  Sex: Male

DRUGS (2)
  1. LORAZEPAM [Suspect]
     Indication: CONVULSION
     Dosage: 2MG QID IV
     Route: 042
     Dates: start: 20070727, end: 20070730
  2. LORAZEPAM [Suspect]
     Indication: PROPHYLAXIS AGAINST ALCOHOLIC WITHDRAWAL SYNDROME
     Dosage: 2MG QID IV
     Route: 042
     Dates: start: 20070727, end: 20070730

REACTIONS (2)
  - AGITATION [None]
  - CONDITION AGGRAVATED [None]
